FAERS Safety Report 5729233-9 (Version None)
Quarter: 2008Q2

REPORT INFORMATION
  Report Type: 
  Country: None (occurrence: None)
  Receive Date: 20080430
  Receipt Date: 20071226
  Transmission Date: 20081010
  Serious: No
  Sender: FDA-Public Use
  Company Number: 2007PV033883

PATIENT
  Age: 56 Year
  Sex: Male
  Weight: 147.419 kg

DRUGS (1)
  1. SYMLIN [Suspect]
     Indication: TYPE 2 DIABETES MELLITUS
     Dosage: 120 MCG;BID;SC
     Route: 058
     Dates: start: 20071214, end: 20071218

REACTIONS (4)
  - ASTHENIA [None]
  - HEADACHE [None]
  - PRESYNCOPE [None]
  - VISION BLURRED [None]
